FAERS Safety Report 8220839-4 (Version None)
Quarter: 2012Q1

REPORT INFORMATION
  Report Type: 
  Country: None (occurrence: None)
  Receive Date: 20120320
  Receipt Date: 20120316
  Transmission Date: 20120608
  Serious: Yes (Hospitalization)
  Sender: FDA-Public Use
  Company Number: CH-PFIZER INC-2008055339

PATIENT
  Age: 64 Year
  Sex: Male
  Weight: 176 kg

DRUGS (4)
  1. TESTOVIRON [Concomitant]
  2. TESTOTERONE [Concomitant]
     Dosage: 1 AMPULE EVERY 3 MONTHS
  3. SOMATROPIN [Suspect]
     Indication: HYPOPITUITARISM
     Dosage: 0.20 MG, 1X/DAY
     Route: 058
     Dates: start: 20061025, end: 20070124
  4. LEVOTHYROXINE SODIUM [Concomitant]
     Route: 048

REACTIONS (1)
  - PITUITARY HAEMORRHAGE [None]
